FAERS Safety Report 8018276-0 (Version None)
Quarter: 2012Q1

REPORT INFORMATION
  Report Type: 
  Country: None (occurrence: None)
  Receive Date: 20120103
  Receipt Date: 20111229
  Transmission Date: 20120608
  Serious: Yes (Other)
  Sender: FDA-Public Use
  Company Number: US-BAYER-2011-124617

PATIENT
  Age: 71 Year
  Sex: Male
  Weight: 109 kg

DRUGS (12)
  1. ALEVE (CAPLET) [Suspect]
     Indication: ANALGESIC THERAPY
     Dosage: UNK
     Route: 048
     Dates: end: 20111228
  2. OXYBUTYNIN [Concomitant]
  3. INSULIN [Concomitant]
  4. LISINOPRIL [Concomitant]
  5. GABAPENTIN [Concomitant]
  6. AMLODIPINE [Concomitant]
  7. TAMSULOSIN HCL [Concomitant]
  8. HYDROCODONE [Concomitant]
  9. NEXIUM [Concomitant]
  10. FINASTERIDE [Concomitant]
  11. METOPROLOL SUCCINATE [Concomitant]
  12. SIMVASTATIN [Concomitant]

REACTIONS (3)
  - ABDOMINAL DISCOMFORT [None]
  - HAEMATOCHEZIA [None]
  - ABDOMINAL PAIN UPPER [None]
